FAERS Safety Report 7911688-2 (Version None)
Quarter: 2011Q4

REPORT INFORMATION
  Report Type: 
  Country: None (occurrence: None)
  Receive Date: 20111114
  Receipt Date: 20111102
  Transmission Date: 20120403
  Serious: Yes (Hospitalization)
  Sender: FDA-Public Use
  Company Number: JP-JNJFOC-20111102143

PATIENT
  Age: 7 Decade
  Sex: Female

DRUGS (6)
  1. OXYCODONE HCL [Suspect]
     Indication: PRODUCT USED FOR UNKNOWN INDICATION
     Route: 065
  2. FENTANYL-100 [Suspect]
     Indication: PRODUCT USED FOR UNKNOWN INDICATION
     Route: 062
  3. ACETAMINOPHEN [Suspect]
     Indication: PRODUCT USED FOR UNKNOWN INDICATION
     Route: 065
  4. ACETAMINOPHEN [Suspect]
     Route: 065
  5. MORPHINE [Concomitant]
     Route: 065
  6. MORPHINE [Concomitant]
     Route: 065

REACTIONS (2)
  - SOMNOLENCE [None]
  - PAIN [None]
